FAERS Safety Report 17603269 (Version 1)
Quarter: 2020Q1

REPORT INFORMATION
  Report Type: Spontaneous
  Country: AT (occurrence: AT)
  Receive Date: 20200331
  Receipt Date: 20200331
  Transmission Date: 20200409
  Serious: Yes (Other)
  Sender: FDA-Public Use
  Company Number: AT-ACCORD-177491

PATIENT

DRUGS (4)
  1. ONDANSETRON [Concomitant]
     Active Substance: ONDANSETRON
     Dosage: STRENGTH: 8 MG
  2. CARBOPLATIN ACCORD [Suspect]
     Active Substance: CARBOPLATIN
     Indication: PRODUCT USED FOR UNKNOWN INDICATION
     Dates: start: 20200217
  3. FORTECORTIN [Concomitant]
     Active Substance: DEXAMETHASONE
     Dosage: STRENGTH: 20 MG, AS SHORT INFUSION
  4. EMEND [Concomitant]
     Active Substance: APREPITANT
     Dosage: 125 OVER THE MOUTH

REACTIONS (5)
  - Anaphylactic shock [Recovered/Resolved]
  - Pulse absent [Recovered/Resolved]
  - Seizure [Recovered/Resolved]
  - Flushing [Recovered/Resolved]
  - Respiratory failure [Recovered/Resolved]

NARRATIVE: CASE EVENT DATE: 20200217
